FAERS Safety Report 17094956 (Version 1)
Quarter: 2019Q4

REPORT INFORMATION
  Report Type: Spontaneous
  Country: JP (occurrence: JP)
  Receive Date: 20191130
  Receipt Date: 20191130
  Transmission Date: 20200122
  Serious: Yes (Hospitalization, Other)
  Sender: FDA-Public Use
  Company Number: JP-CHEPLA-C20191687

PATIENT
  Age: 69 Year
  Sex: Male
  Weight: 68.4 kg

DRUGS (11)
  1. PREDNISOLONE. [Suspect]
     Active Substance: PREDNISOLONE
     Indication: HEPATIC FUNCTION ABNORMAL
     Dosage: 1 MILLIGRAM/KILOGRAM, QD
     Route: 065
     Dates: start: 20190214
  2. PREDNISOLONE. [Suspect]
     Active Substance: PREDNISOLONE
     Indication: HEPATIC FUNCTION ABNORMAL
     Route: 065
     Dates: start: 20190320
  3. PREDNISOLONE. [Suspect]
     Active Substance: PREDNISOLONE
     Indication: HEPATIC FUNCTION ABNORMAL
     Dosage: 30 MG/DAY
     Route: 048
     Dates: start: 20190319, end: 20190324
  4. PREDNISOLONE. [Suspect]
     Active Substance: PREDNISOLONE
     Indication: HEPATIC FUNCTION ABNORMAL
     Dosage: 60 MG/DAY
     Route: 065
     Dates: start: 20190304, end: 20190311
  5. DIAPHEN [Suspect]
     Active Substance: SULFAMETHOXAZOLE\TRIMETHOPRIM
     Indication: PROPHYLAXIS
     Route: 048
     Dates: start: 20190228, end: 20190316
  6. LASIX [Suspect]
     Active Substance: FUROSEMIDE
     Indication: HEPATIC FUNCTION ABNORMAL
     Dosage: 60 MILLIGRAM, QD
     Route: 048
  7. PREDNISOLONE. [Suspect]
     Active Substance: PREDNISOLONE
     Indication: HEPATIC FUNCTION ABNORMAL
     Dosage: 10 MILLIGRAM, QD
     Dates: start: 20190416
  8. PREDNISOLONE. [Suspect]
     Active Substance: PREDNISOLONE
     Indication: HEPATIC FUNCTION ABNORMAL
     Dosage: 25 MG/DAY
     Route: 048
     Dates: start: 20190326, end: 20190401
  9. DENOSINE (GANCICLOVIR) [Suspect]
     Active Substance: GANCICLOVIR
     Indication: CYTOMEGALOVIRUS INFECTION
     Dosage: DOSE OF 500MG THROUGH IV DRIP
     Route: 041
     Dates: start: 20190301, end: 20190329
  10. PREDNISOLONE. [Suspect]
     Active Substance: PREDNISOLONE
     Indication: HEPATIC FUNCTION ABNORMAL
     Dosage: 40 MG/DAY
     Route: 048
     Dates: start: 20190312, end: 20190318
  11. PREDNISOLONE. [Suspect]
     Active Substance: PREDNISOLONE
     Indication: HEPATIC FUNCTION ABNORMAL
     Dosage: 20 MG/DAY
     Route: 048
     Dates: start: 20190402, end: 20190404

REACTIONS (18)
  - Musculoskeletal pain [Recovering/Resolving]
  - Platelet count decreased [Recovering/Resolving]
  - Hepatic failure [Not Recovered/Not Resolved]
  - Urinary meatitis [Unknown]
  - Skin ulcer [Unknown]
  - Lung disorder [Recovering/Resolving]
  - Hepatic encephalopathy [Unknown]
  - Haemophagocytic lymphohistiocytosis [Unknown]
  - Peritonitis bacterial [Recovering/Resolving]
  - Haemorrhoids [Recovering/Resolving]
  - Hyperglycaemia [Unknown]
  - Blood beta-D-glucan increased [Recovering/Resolving]
  - Bacterial infection [Unknown]
  - Jugular vein thrombosis [Unknown]
  - Impaired healing [Unknown]
  - Hypothyroidism [Unknown]
  - Dyschezia [Recovering/Resolving]
  - Hyponatraemia [Unknown]

NARRATIVE: CASE EVENT DATE: 20190308
